FAERS Safety Report 9051102 (Version 1)
Quarter: 2013Q1

REPORT INFORMATION
  Report Type: Spontaneous
  Country: US (occurrence: US)
  Receive Date: 20130206
  Receipt Date: 20130206
  Transmission Date: 20140127
  Serious: No
  Sender: FDA-Public Use
  Company Number: US-PFIZER INC-2013045412

PATIENT
  Sex: Female

DRUGS (2)
  1. CELEBREX [Suspect]
     Indication: PAIN
     Dosage: 1-200 MG DAILY
  2. IBUPROFEN [Suspect]
     Indication: PAIN
     Dosage: 1200

REACTIONS (2)
  - Incorrect dose administered [Unknown]
  - Pain [Unknown]
